FAERS Safety Report 8158025-9 (Version None)
Quarter: 2012Q1

REPORT INFORMATION
  Report Type: 
  Country: None (occurrence: None)
  Receive Date: 20120222
  Receipt Date: 20120213
  Transmission Date: 20120608
  Serious: Yes (Other)
  Sender: FDA-Public Use
  Company Number: PHEH2012US003689

PATIENT
  Sex: Female

DRUGS (7)
  1. TEGRETOL [Suspect]
     Dosage: 400 OT, BID
  2. SYNTHROID [Concomitant]
  3. TEKTURNA [Suspect]
     Dosage: 150 MG, QD
  4. LAMICTAL [Suspect]
  5. NOVOLOG [Concomitant]
  6. ALTACE [Concomitant]
     Dosage: 2 DF(10), DAILY
  7. LESCOL XL [Concomitant]

REACTIONS (5)
  - MEMORY IMPAIRMENT [None]
  - PANCREATIC DISORDER [None]
  - DIABETES MELLITUS [None]
  - TRANSIENT ISCHAEMIC ATTACK [None]
  - LOSS OF CONSCIOUSNESS [None]
